FAERS Safety Report 5051674-6 (Version None)
Quarter: 2006Q3

REPORT INFORMATION
  Report Type: 
  Country: None (occurrence: None)
  Receive Date: 20060712
  Receipt Date: 20060712
  Transmission Date: 20061208
  Serious: Yes (Hospitalization, Disabling)
  Sender: FDA-Public Use
  Company Number: None

PATIENT
  Sex: Male
  Weight: 107 kg

DRUGS (4)
  1. PAMIDRONATE DISODIUM [Suspect]
     Indication: OSTEITIS DEFORMANS
     Dosage: 60 MG DAILY IV
     Route: 042
     Dates: start: 20060428, end: 20060501
  2. INDOMETHACIN [Suspect]
     Indication: GOUT
     Dosage: `25 MG Q8H PO
     Route: 048
     Dates: start: 20060430, end: 20060501
  3. INDOMETHACIN [Suspect]
     Indication: OSTEOARTHRITIS
     Dosage: `25 MG Q8H PO
     Route: 048
     Dates: start: 20060430, end: 20060501
  4. INDOMETHACIN [Suspect]
     Indication: PAIN
     Dosage: `25 MG Q8H PO
     Route: 048
     Dates: start: 20060430, end: 20060501

REACTIONS (6)
  - ACUTE PRERENAL FAILURE [None]
  - ARTHRALGIA [None]
  - BLOOD ALBUMIN DECREASED [None]
  - DEHYDRATION [None]
  - DIALYSIS [None]
  - RENAL FAILURE [None]
